FAERS Safety Report 22516539 (Version 1)
Quarter: 2023Q2

REPORT INFORMATION
  Report Type: Spontaneous
  Country: US (occurrence: US)
  Receive Date: 20230603
  Receipt Date: 20230603
  Transmission Date: 20230722
  Serious: Yes (Hospitalization)
  Sender: FDA-Public Use
  Company Number: US-SPECGX-T202301287

PATIENT
  Age: 54 Year
  Sex: Female

DRUGS (1)
  1. METHADONE [Suspect]
     Active Substance: METHADONE HYDROCHLORIDE
     Indication: Product used for unknown indication
     Dosage: UNK
     Route: 065

REACTIONS (10)
  - Fall [Recovered/Resolved]
  - Vision blurred [Recovered/Resolved]
  - Pancreatectomy [Recovered/Resolved]
  - Splenectomy [Recovered/Resolved]
  - Nesidioblastosis [Recovered/Resolved]
  - Ileus [Recovered/Resolved]
  - Staphylococcal sepsis [Recovered/Resolved]
  - Clostridium difficile colitis [Recovered/Resolved]
  - Cardiac arrest [Recovered/Resolved]
  - Hypoglycaemia [Recovered/Resolved]
